FAERS Safety Report 9919296 (Version 1)
Quarter: 2014Q1

REPORT INFORMATION
  Report Type: Report from Study
  Country: SA (occurrence: SA)
  Receive Date: 20140224
  Receipt Date: 20140224
  Transmission Date: 20141002
  Serious: Yes (Death)
  Sender: FDA-Public Use
  Company Number: SA-INCYTE CORPORATION-2014IN000405

PATIENT
  Age: 49 Year
  Sex: Male

DRUGS (5)
  1. INC424 [Suspect]
     Dosage: 10 MG IN MORNING AND 5 MG AT NIGHT
     Route: 065
  2. DESFERAL [Concomitant]
  3. FOLIC ACID [Concomitant]
  4. TRAMADOL [Concomitant]
  5. PREDNISOLONE [Concomitant]

REACTIONS (1)
  - Death [Fatal]
